FAERS Safety Report 20455256 (Version 2)
Quarter: 2022Q1

REPORT INFORMATION
  Report Type: Spontaneous
  Country: DE (occurrence: DE)
  Receive Date: 20220210
  Receipt Date: 20220311
  Transmission Date: 20220423
  Serious: Yes (Death, Hospitalization, Other)
  Sender: FDA-Public Use
  Company Number: DE-NOVARTISPH-NVSC2022DE028840

PATIENT
  Age: 69 Year
  Sex: Male
  Weight: 55 kg

DRUGS (13)
  1. TAFINLAR [Suspect]
     Active Substance: DABRAFENIB MESYLATE
     Indication: Non-small cell lung cancer
     Dosage: 75 MG, BID
     Route: 048
     Dates: start: 20210911, end: 20220103
  2. TAFINLAR [Suspect]
     Active Substance: DABRAFENIB MESYLATE
     Indication: Bronchial carcinoma
  3. MEKINIST [Suspect]
     Active Substance: TRAMETINIB DIMETHYL SULFOXIDE
     Indication: Non-small cell lung cancer
     Dosage: 2 MG, QD
     Route: 048
     Dates: start: 20210911, end: 20220103
  4. MEKINIST [Suspect]
     Active Substance: TRAMETINIB DIMETHYL SULFOXIDE
     Indication: Bronchial carcinoma
  5. METOCLOPRAMIDE [Concomitant]
     Active Substance: METOCLOPRAMIDE
     Indication: Nausea
     Dosage: UNK, PRN
     Route: 048
  6. LOPERAMIDE [Concomitant]
     Active Substance: LOPERAMIDE
     Indication: Diarrhoea
     Dosage: UNK UNK, PRN
     Route: 048
  7. METAMIZOLE [Concomitant]
     Active Substance: METAMIZOLE
     Indication: Pyrexia
     Dosage: UNK UNK, PRN
     Route: 048
  8. METAMIZOLE [Concomitant]
     Active Substance: METAMIZOLE
     Indication: Chills
  9. HYDROMORPHONE [Concomitant]
     Active Substance: HYDROMORPHONE
     Indication: Product used for unknown indication
     Dosage: UNK, BID
     Route: 065
  10. MIRTAZAPINE [Concomitant]
     Active Substance: MIRTAZAPINE
     Indication: Product used for unknown indication
     Dosage: 1 DOSAGE FORM, QD
     Route: 065
  11. TAMSULOSIN [Concomitant]
     Active Substance: TAMSULOSIN
     Indication: Product used for unknown indication
     Dosage: UNK, QD (0.4)
     Route: 065
  12. LACTULOSE [Concomitant]
     Active Substance: LACTULOSE
     Indication: Product used for unknown indication
     Dosage: 15 ML, PRN
     Route: 065
  13. ALBUTEROL [Concomitant]
     Active Substance: ALBUTEROL
     Indication: Product used for unknown indication
     Dosage: UNK, TID (AS NEEDED)
     Route: 065

REACTIONS (41)
  - Non-small cell lung cancer [Fatal]
  - Malignant neoplasm progression [Fatal]
  - Loss of consciousness [Not Recovered/Not Resolved]
  - General physical health deterioration [Recovering/Resolving]
  - Inflammatory marker increased [Unknown]
  - Marginal zone lymphoma [Unknown]
  - Pulmonary fibrosis [Unknown]
  - Spinal ligament ossification [Unknown]
  - Mastoiditis [Unknown]
  - Pneumonia [Not Recovered/Not Resolved]
  - Aortic arteriosclerosis [Unknown]
  - Urinary retention [Unknown]
  - Cerebral atrophy [Unknown]
  - Dyspnoea at rest [Unknown]
  - Otitis media acute [Unknown]
  - Rib fracture [Unknown]
  - Emphysema [Unknown]
  - Vascular calcification [Unknown]
  - Vasodilatation [Unknown]
  - Heart rate increased [Recovering/Resolving]
  - Sinus tachycardia [Recovering/Resolving]
  - Left ventricular enlargement [Unknown]
  - Aortic elongation [Unknown]
  - Neutrophil count increased [Unknown]
  - Monocyte count increased [Unknown]
  - Red blood cell count increased [Unknown]
  - Haematuria [Unknown]
  - Pyuria [Unknown]
  - Haemoglobin abnormal [Unknown]
  - Haematocrit abnormal [Unknown]
  - Hepatic function abnormal [Unknown]
  - Blood glucose abnormal [Unknown]
  - Blood sodium decreased [Recovered/Resolved]
  - Blood potassium decreased [Recovered/Resolved]
  - Blood calcium abnormal [Unknown]
  - Blood chloride abnormal [Unknown]
  - Blood iron decreased [Unknown]
  - Blood cholesterol abnormal [Unknown]
  - Protein total decreased [Unknown]
  - Alanine aminotransferase decreased [Unknown]
  - Urinary sediment present [Unknown]

NARRATIVE: CASE EVENT DATE: 20211216
